FAERS Safety Report 9038836 (Version 1)
Quarter: 2013Q1

REPORT INFORMATION
  Report Type: Spontaneous
  Country: US (occurrence: None)
  Receive Date: 20130123
  Receipt Date: 20130123
  Transmission Date: 20140127
  Serious: Yes (Other)
  Sender: FDA-Public Use
  Company Number: None

PATIENT
  Age: 49 None
  Sex: Male
  Weight: 65.77 kg

DRUGS (1)
  1. STRATTERA [Suspect]
     Indication: ATTENTION DEFICIT/HYPERACTIVITY DISORDER
     Dosage: 25MG OD OD
     Dates: start: 20130101

REACTIONS (5)
  - Nausea [None]
  - Penile size reduced [None]
  - Scrotal disorder [None]
  - Urinary retention [None]
  - Hepatic pain [None]
